FAERS Safety Report 4582573-1 (Version None)
Quarter: 2005Q1

REPORT INFORMATION
  Report Type: 
  Country: None (occurrence: None)
  Receive Date: 20050215
  Receipt Date: 20050209
  Transmission Date: 20050727
  Serious: Yes (Death)
  Sender: FDA-Public Use
  Company Number: 200511071US

PATIENT
  Age: 65 Year
  Sex: Female

DRUGS (2)
  1. LOVENOX [Suspect]
     Indication: HIP ARTHROPLASTY
     Dates: start: 20040623
  2. LOVENOX [Suspect]
     Indication: PROPHYLAXIS
     Dates: start: 20040623

REACTIONS (1)
  - CANDIDA SEPSIS [None]
